FAERS Safety Report 21925263 (Version 1)
Quarter: 2023Q1

REPORT INFORMATION
  Report Type: Other
  Country: GB (occurrence: GB)
  Receive Date: 20230130
  Receipt Date: 20230130
  Transmission Date: 20230417
  Serious: Yes (Hospitalization)
  Sender: FDA-Public Use
  Company Number: None

PATIENT
  Age: 59 Year
  Sex: Male
  Weight: 67 kg

DRUGS (2)
  1. COLCHICINE [Suspect]
     Active Substance: COLCHICINE
     Indication: Gout
     Dosage: 500 MILLIGRAM, BID
     Route: 065
     Dates: start: 20220829
  2. OMEPRAZOLE [Concomitant]
     Active Substance: OMEPRAZOLE
     Indication: Adverse drug reaction
     Dosage: UNK
     Route: 065
     Dates: start: 20220829, end: 20220903

REACTIONS (3)
  - Liver disorder [Recovered/Resolved]
  - Abdominal distension [Recovered/Resolved]
  - Retroperitonitis [Recovered/Resolved]

NARRATIVE: CASE EVENT DATE: 20220901
